FAERS Safety Report 6212992-9 (Version None)
Quarter: 2009Q2

REPORT INFORMATION
  Report Type: 
  Country: None (occurrence: None)
  Receive Date: 20090601
  Receipt Date: 20090518
  Transmission Date: 20091009
  Serious: Yes (Hospitalization)
  Sender: FDA-Public Use
  Company Number: 2009AL002152

PATIENT
  Age: 77 Year
  Sex: Male

DRUGS (7)
  1. DIGOXIN [Suspect]
     Dosage: 0.125MG, QOD, PO
     Route: 048
     Dates: start: 20080225
  2. CARVEDILOL [Concomitant]
  3. ISOSORBIDE [Concomitant]
  4. GUANFACINE HYDROCHLORIDE [Concomitant]
  5. RENAL SOFT GEL [Concomitant]
  6. MONONITRATE [Concomitant]
  7. LISINOPRIL [Concomitant]

REACTIONS (14)
  - ANHEDONIA [None]
  - CARDIAC FAILURE [None]
  - COGNITIVE DISORDER [None]
  - ECONOMIC PROBLEM [None]
  - EMOTIONAL DISORDER [None]
  - FALL [None]
  - HEAD INJURY [None]
  - INJURY [None]
  - MEMORY IMPAIRMENT [None]
  - MENTAL DISORDER [None]
  - PAIN [None]
  - SKIN LACERATION [None]
  - SUBARACHNOID HAEMORRHAGE [None]
  - SUBDURAL HAEMATOMA [None]
